FAERS Safety Report 22245766 (Version 2)
Quarter: 2023Q2

REPORT INFORMATION
  Report Type: Report from Study
  Country: HN (occurrence: HN)
  Receive Date: 20230424
  Receipt Date: 20230504
  Transmission Date: 20230722
  Serious: Yes (Disabling)
  Sender: FDA-Public Use
  Company Number: HN-002147023-NVSC2023HN092267

PATIENT
  Age: 77 Year
  Sex: Female

DRUGS (5)
  1. EXFORGE HCT [Suspect]
     Active Substance: AMLODIPINE BESYLATE\HYDROCHLOROTHIAZIDE\VALSARTAN
     Indication: Hypertension
     Dosage: 5/160/25 MG, QD
     Route: 048
     Dates: start: 2020
  2. EXFORGE HCT [Suspect]
     Active Substance: AMLODIPINE BESYLATE\HYDROCHLOROTHIAZIDE\VALSARTAN
     Dosage: 5/160/12.5 MG, QD, STARTED TWO MONTHS AGO
     Route: 048
  3. AMARYL [Concomitant]
     Active Substance: GLIMEPIRIDE
     Indication: Diabetes mellitus
     Dosage: 1 DOSAGE FORM, QD, BEFORE THE  PANDEMIC (BEFORE 2020)
     Route: 048
  4. JANUMET [Concomitant]
     Active Substance: METFORMIN HYDROCHLORIDE\SITAGLIPTIN PHOSPHATE
     Indication: Diabetes mellitus
     Dosage: 50 MG/ 800 MG, QD, 2 WEEK AGO
     Route: 048
  5. VERTICIN [Concomitant]
     Indication: Vomiting
     Dosage: 1 DOSAGE FORM, PRN, 2 WEEK AGO, ONLY WHEN SHE FEELS VOMITING
     Route: 065

REACTIONS (10)
  - Lower limb fracture [Recovering/Resolving]
  - Gait disturbance [Not Recovered/Not Resolved]
  - Hypertension [Recovering/Resolving]
  - Cholelithiasis [Unknown]
  - Back pain [Unknown]
  - Pollakiuria [Recovering/Resolving]
  - Accident [Unknown]
  - Blood glucose abnormal [Unknown]
  - Malaise [Not Recovered/Not Resolved]
  - Drug ineffective [Recovering/Resolving]

NARRATIVE: CASE EVENT DATE: 20220601
